FAERS Safety Report 8088022-3 (Version None)
Quarter: 2012Q1

REPORT INFORMATION
  Report Type: 
  Country: None (occurrence: None)
  Receive Date: 20120128
  Receipt Date: 20110527
  Transmission Date: 20120608
  Serious: No
  Sender: FDA-Public Use
  Company Number: US-ABBOTT-11P-163-0728866-00

PATIENT
  Sex: Female
  Weight: 82.628 kg

DRUGS (8)
  1. BUSPAR [Concomitant]
     Indication: ANXIETY
  2. MULTIPLE VITAMIN [Concomitant]
     Indication: PRODUCT USED FOR UNKNOWN INDICATION
  3. HUMIRA [Suspect]
     Indication: ANKYLOSING SPONDYLITIS
     Route: 058
     Dates: start: 20070101
  4. OMEPRAZOLE [Concomitant]
     Indication: GASTROOESOPHAGEAL REFLUX DISEASE
  5. FLEXERIL [Concomitant]
     Indication: BRUXISM
     Dosage: AT BEDTIME
  6. CALCIUM [Concomitant]
     Indication: OSTEOPENIA
  7. GENERIC COZAR [Concomitant]
     Indication: HYPERTENSION
  8. CRANBERRY VITAMIN C [Concomitant]
     Indication: PRODUCT USED FOR UNKNOWN INDICATION

REACTIONS (1)
  - ANKYLOSING SPONDYLITIS [None]
